FAERS Safety Report 7168319-1 (Version None)
Quarter: 2010Q4

REPORT INFORMATION
  Report Type: 
  Country: None (occurrence: None)
  Receive Date: 20101216
  Receipt Date: 20101208
  Transmission Date: 20110411
  Serious: Yes (Hospitalization)
  Sender: FDA-Public Use
  Company Number: US-US-EMD SERONO, INC.-7000453

PATIENT
  Sex: Male
  Weight: 116 kg

DRUGS (7)
  1. REBIF [Suspect]
     Indication: MULTIPLE SCLEROSIS
     Route: 058
     Dates: start: 20090611, end: 20100201
  2. REBIF [Suspect]
     Route: 058
     Dates: start: 20100101, end: 20100401
  3. IBUPROFEN [Concomitant]
     Indication: PREMEDICATION
     Dates: start: 20090601, end: 20100401
  4. ASPIRIN [Concomitant]
     Indication: BLOOD CHOLESTEROL INCREASED
     Dates: start: 20090101, end: 20100401
  5. GLUCOPHAGE [Concomitant]
     Indication: DIABETES MELLITUS
     Dates: start: 20080101, end: 20100401
  6. METOPROLOL [Concomitant]
     Indication: HYPERTENSION
  7. HYDRALAZINE [Concomitant]
     Indication: HYPERTENSION

REACTIONS (3)
  - GLOMERULAR FILTRATION RATE DECREASED [None]
  - PNEUMONIA [None]
  - RASH [None]
